FAERS Safety Report 7652809-9 (Version None)
Quarter: 2011Q3

REPORT INFORMATION
  Report Type: 
  Country: None (occurrence: None)
  Receive Date: 20110803
  Receipt Date: 20110727
  Transmission Date: 20111222
  Serious: Yes (Other)
  Sender: FDA-Public Use
  Company Number: IL-PERRIGO-11IL006160

PATIENT
  Age: 40 Year
  Sex: Female

DRUGS (2)
  1. EXIDOL 374 [Suspect]
     Indication: HEADACHE
     Dosage: 1 TABLET
     Route: 048
     Dates: start: 20110713, end: 20110713
  2. EXIDOL 374 [Suspect]
     Dosage: 1 TABLET
     Route: 048
     Dates: start: 20110727, end: 20110727

REACTIONS (5)
  - TREMOR [None]
  - DRUG HYPERSENSITIVITY [None]
  - FATIGUE [None]
  - HYPERSENSITIVITY [None]
  - VIRAL INFECTION [None]
